FAERS Safety Report 6175430-0 (Version None)
Quarter: 2009Q2

REPORT INFORMATION
  Report Type: 
  Country: None (occurrence: None)
  Receive Date: 20090429
  Receipt Date: 20090417
  Transmission Date: 20091009
  Serious: Yes (Other)
  Sender: FDA-Public Use
  Company Number: 234316K09USA

PATIENT
  Age: 40 Year
  Sex: Female

DRUGS (1)
  1. REBIF [Suspect]
     Indication: MULTIPLE SCLEROSIS
     Dosage: 44 MCG, 3 IN 1 WEEKS, SUBCUTANEOUS
     Route: 058
     Dates: start: 20030814

REACTIONS (11)
  - ABDOMINAL PAIN UPPER [None]
  - ARTHRITIS [None]
  - DEPRESSION [None]
  - FIBROMYALGIA [None]
  - HERPES ZOSTER [None]
  - INTERVERTEBRAL DISC DEGENERATION [None]
  - NEPHROLITHIASIS [None]
  - OVARIAN CYST [None]
  - POST PROCEDURAL COMPLICATION [None]
  - SENSATION OF FOREIGN BODY [None]
  - STOMACH MASS [None]
